FAERS Safety Report 14463771 (Version 3)
Quarter: 2018Q1

REPORT INFORMATION
  Report Type: Report from Study
  Country: UG (occurrence: UG)
  Receive Date: 20180130
  Receipt Date: 20180212
  Transmission Date: 20180509
  Serious: Yes (Congenital Anomaly, Other)
  Sender: FDA-Public Use
  Company Number: UG-HETERO-HET2018UG00056

PATIENT
  Sex: Male
  Weight: 2.5 kg

DRUGS (7)
  1. TENOFOVIR DISOPROXIL FUMARATE. [Suspect]
     Active Substance: TENOFOVIR DISOPROXIL FUMARATE
     Indication: HIV INFECTION
     Dosage: 300 MG, QD
     Route: 064
     Dates: start: 20171206, end: 20180112
  2. SECNIDAZOLE [Concomitant]
     Active Substance: SECNIDAZOLE
     Indication: PRODUCT USED FOR UNKNOWN INDICATION
     Route: 065
  3. TRIMETHOPRIM SULFAMETHOXAZOLE [Concomitant]
     Active Substance: SULFAMETHOXAZOLE\TRIMETHOPRIM
     Indication: PRODUCT USED FOR UNKNOWN INDICATION
     Route: 065
  4. BENZATHINE PENICILLIN [Concomitant]
     Active Substance: PENICILLIN G BENZATHINE
     Indication: PRODUCT USED FOR UNKNOWN INDICATION
     Route: 065
  5. EFAVIRENZ. [Suspect]
     Active Substance: EFAVIRENZ
     Indication: HIV INFECTION
     Dosage: 600 MG, QD
     Route: 064
     Dates: start: 20171206, end: 20180112
  6. FOLATE SUPPLEMENT [Concomitant]
     Indication: PRODUCT USED FOR UNKNOWN INDICATION
     Route: 065
  7. LAMIVUDINE. [Suspect]
     Active Substance: LAMIVUDINE
     Indication: HIV INFECTION
     Dosage: 300 MG, QD
     Route: 064
     Dates: start: 20171206, end: 20180112

REACTIONS (11)
  - Wrist deformity [Unknown]
  - Foetal exposure during pregnancy [Unknown]
  - Developmental hip dysplasia [Unknown]
  - Congenital syphilis [Unknown]
  - Skull malformation [Unknown]
  - Congenital knee dislocation [Unknown]
  - Hair texture abnormal [Unknown]
  - Talipes [Unknown]
  - Micrognathia [Unknown]
  - Congenital limb hyperextension [Unknown]
  - Cushingoid [Unknown]
